FAERS Safety Report 4329910-0 (Version None)
Quarter: 2004Q1

REPORT INFORMATION
  Report Type: 
  Country: None (occurrence: None)
  Receive Date: 20040329
  Receipt Date: 20040305
  Transmission Date: 20041129
  Serious: Yes (Hospitalization)
  Sender: FDA-Public Use
  Company Number: JP-JNJFOC-20040305082

PATIENT
  Age: 65 Year
  Sex: Male

DRUGS (2)
  1. ITRACONAZOLE [Suspect]
     Indication: ONYCHOMYCOSIS
     Dosage: 100 MG, IN 1 DAY, ORAL
     Route: 048
     Dates: start: 20040213, end: 20040227
  2. INSULIN [Suspect]
     Indication: BLOOD GLUCOSE INCREASED

REACTIONS (3)
  - FRACTURE [None]
  - HYPOGLYCAEMIA [None]
  - OVERDOSE [None]
